FAERS Safety Report 5820010-7 (Version None)
Quarter: 2008Q3

REPORT INFORMATION
  Report Type: 
  Country: None (occurrence: None)
  Receive Date: 20080718
  Receipt Date: 20080718
  Transmission Date: 20090109
  Serious: Yes (Life-Threatening, Hospitalization)
  Sender: FDA-Public Use
  Company Number: None

PATIENT
  Age: 47 Year
  Sex: Female
  Weight: 66.4 kg

DRUGS (1)
  1. FILGRASTIM 300MCG [Suspect]
     Indication: HAEMATOPOIETIC STEM CELL MOBILISATION
     Dosage: 600 MCG BID SQ
     Route: 058
     Dates: start: 20080711, end: 20080715

REACTIONS (10)
  - ABDOMINAL PAIN UPPER [None]
  - DRUG INEFFECTIVE [None]
  - EMBOLISM [None]
  - HAEMOGLOBIN S DECREASED [None]
  - HEADACHE [None]
  - HYPOTENSION [None]
  - PERITONEAL HAEMORRHAGE [None]
  - SPLEEN DISORDER [None]
  - VOMITING [None]
  - WHITE BLOOD CELL COUNT INCREASED [None]
